FAERS Safety Report 7351331-7 (Version None)
Quarter: 2011Q1

REPORT INFORMATION
  Report Type: 
  Country: None (occurrence: None)
  Receive Date: 20110304
  Receipt Date: 20110222
  Transmission Date: 20110831
  Serious: Yes (Other)
  Sender: FDA-Public Use
  Company Number: 2011P1004429

PATIENT
  Age: 83 Year
  Sex: Female
  Weight: 65.7716 kg

DRUGS (10)
  1. BENICAR [Concomitant]
  2. POTASSIUM CHLORIDE [Concomitant]
  3. VALTREX [Concomitant]
  4. ASPIRIN [Concomitant]
  5. FUROSEMIDE [Concomitant]
  6. A STEROID 1% EYE DROP [Concomitant]
  7. METOPROLOL [Concomitant]
  8. CALCIUM [Concomitant]
  9. TEKTURNA [Concomitant]
  10. TERAZOSIN HCL [Suspect]
     Indication: HYPERTENSION
     Dosage: 4 MG, HS, PO
     Route: 048
     Dates: start: 20100901, end: 20110201

REACTIONS (7)
  - BLADDER DISORDER [None]
  - BLADDER PROLAPSE [None]
  - HYPERSOMNIA [None]
  - URINARY INCONTINENCE [None]
  - POLLAKIURIA [None]
  - BLOOD PRESSURE INCREASED [None]
  - URINE OUTPUT INCREASED [None]
